FAERS Safety Report 7811402-5 (Version None)
Quarter: 2011Q4

REPORT INFORMATION
  Report Type: 
  Country: None (occurrence: None)
  Receive Date: 20111013
  Receipt Date: 20111006
  Transmission Date: 20120403
  Serious: Yes (Other)
  Sender: FDA-Public Use
  Company Number: JP-PFIZER INC-2011223663

PATIENT
  Age: 70 Year
  Sex: Male
  Weight: 44 kg

DRUGS (6)
  1. VARENICLINE TARTRATE [Suspect]
     Dosage: UNK
     Dates: start: 20110101, end: 20110902
  2. VARENICLINE TARTRATE [Suspect]
     Dosage: 1 MG, 2X/DAY
     Route: 048
     Dates: start: 20110617, end: 20110723
  3. AMARYL [Concomitant]
     Indication: DIABETES MELLITUS
     Dosage: 2 MG, 1X/DAY
     Route: 048
     Dates: start: 20060225
  4. MIGLITOL [Concomitant]
     Indication: DIABETES MELLITUS
     Dosage: 50 MG, 3X/DAY
     Route: 048
     Dates: start: 20080823
  5. VARENICLINE TARTRATE [Suspect]
     Indication: NICOTINE DEPENDENCE
     Dosage: 0.5 MG, 1X/DAY
     Route: 048
     Dates: start: 20110610, end: 20110612
  6. VARENICLINE TARTRATE [Suspect]
     Dosage: 0.5 MG, 2X/DAY
     Route: 048
     Dates: start: 20110613, end: 20110616

REACTIONS (6)
  - FEELING ABNORMAL [None]
  - ABDOMINAL PAIN UPPER [None]
  - RASH [None]
  - WEIGHT DECREASED [None]
  - PAIN IN EXTREMITY [None]
  - DECREASED APPETITE [None]
